FAERS Safety Report 25266990 (Version 1)
Quarter: 2025Q2

REPORT INFORMATION
  Report Type: Spontaneous
  Country: MX (occurrence: MX)
  Receive Date: 20250505
  Receipt Date: 20250505
  Transmission Date: 20250717
  Serious: Yes (Life-Threatening, Other)
  Sender: ROCHE
  Company Number: MX-ROCHE-10000268389

PATIENT
  Age: 40 Year
  Sex: Female
  Weight: 37 kg

DRUGS (1)
  1. OCREVUS [Suspect]
     Active Substance: OCRELIZUMAB
     Indication: Product used for unknown indication
     Route: 065

REACTIONS (8)
  - Eye pain [Unknown]
  - Throat tightness [Unknown]
  - Syncope [Unknown]
  - Seizure [Unknown]
  - Vomiting [Unknown]
  - Balance disorder [Unknown]
  - Eye swelling [Unknown]
  - Vision blurred [Unknown]
